FAERS Safety Report 4734773-5 (Version None)
Quarter: 2005Q3

REPORT INFORMATION
  Report Type: 
  Country: None (occurrence: None)
  Receive Date: 20050804
  Receipt Date: 20050727
  Transmission Date: 20060218
  Serious: Yes (Other)
  Sender: FDA-Public Use
  Company Number: GB-GLAXOSMITHKLINE-B0389004A

PATIENT
  Age: 59 Year
  Sex: Female

DRUGS (5)
  1. ZYBAN [Suspect]
     Dosage: 150MG PER DAY
     Route: 048
     Dates: start: 20050514, end: 20050516
  2. IPRATROPIUM BROMIDE [Concomitant]
     Dosage: 40MCG PER DAY
     Dates: start: 20030901
  3. SALMETEROL [Concomitant]
     Dates: start: 20030901
  4. BECLOMETHASONE DIPROPIONATE [Concomitant]
     Dosage: 200MCG PER DAY
     Dates: start: 20030901
  5. THYROXINE [Concomitant]
     Indication: HYPOTHYROIDISM
     Dosage: 125MCG PER DAY
     Route: 048
     Dates: start: 19930701

REACTIONS (3)
  - DEPRESSED MOOD [None]
  - HEAD DISCOMFORT [None]
  - SENSORY DISTURBANCE [None]
